FAERS Safety Report 25243706 (Version 1)
Quarter: 2025Q2

REPORT INFORMATION
  Report Type: Spontaneous
  Country: FR (occurrence: FR)
  Receive Date: 20250428
  Receipt Date: 20250428
  Transmission Date: 20250716
  Serious: Yes (Hospitalization)
  Sender: CHEPLAPHARM
  Company Number: None

PATIENT
  Age: 68 Year
  Sex: Female
  Weight: 112 kg

DRUGS (16)
  1. QUETIAPINE [Suspect]
     Active Substance: QUETIAPINE
     Indication: Bipolar I disorder
     Dosage: DAILY DOSE: 800 MILLIGRAM
     Route: 048
     Dates: end: 20250315
  2. QUETIAPINE [Suspect]
     Active Substance: QUETIAPINE
     Indication: Bipolar I disorder
     Dosage: DAILY DOSE: 100 MILLIGRAM
     Route: 048
  3. VALPROATE SODIUM [Suspect]
     Active Substance: VALPROATE SODIUM
     Indication: Bipolar I disorder
     Dosage: DAILY DOSE: 1.5 GRAM
     Route: 048
     Dates: end: 20250315
  4. EUPANTOL [Suspect]
     Active Substance: PANTOPRAZOLE SODIUM
     Indication: Product used for unknown indication
     Dosage: DOSE NOT CHANGED?DAILY DOSE: 20 MILLIGRAM
     Route: 048
  5. FUROSEMIDE [Suspect]
     Active Substance: FUROSEMIDE
     Indication: Product used for unknown indication
     Dosage: DAILY DOSE: 40 MILLIGRAM
     Route: 048
     Dates: end: 20250315
  6. LEVOMEPROMAZINE [Suspect]
     Active Substance: LEVOMEPROMAZINE
     Indication: Bipolar I disorder
     Dosage: DAILY DOSE: 50 MILLIGRAM
     Route: 048
     Dates: end: 20250315
  7. LEVOMEPROMAZINE [Suspect]
     Active Substance: LEVOMEPROMAZINE
     Indication: Bipolar I disorder
     Dosage: DAILY DOSE: 75 MILLIGRAM
     Route: 048
  8. OXAZEPAM [Suspect]
     Active Substance: OXAZEPAM
     Indication: Bipolar I disorder
     Dosage: DOSE REDUCED?DAILY DOSE: 150 MILLIGRAM
     Route: 048
     Dates: end: 20250315
  9. OXAZEPAM [Suspect]
     Active Substance: OXAZEPAM
     Indication: Bipolar I disorder
     Route: 048
  10. CYAMEMAZINE [Suspect]
     Active Substance: CYAMEMAZINE
     Indication: Bipolar I disorder
     Dosage: DAILY DOSE: 75 MILLIGRAM
     Route: 048
     Dates: end: 20250315
  11. TRIMEPRAZINE [Suspect]
     Active Substance: TRIMEPRAZINE
     Indication: Insomnia
     Dosage: DAILY DOSE: 10 MILLIGRAM
     Route: 048
     Dates: end: 20250315
  12. ASPIRIN LYSINE [Suspect]
     Active Substance: ASPIRIN LYSINE
     Dosage: DAILY DOSE: 100 MILLIGRAM
  13. CALCIUM CARBONATE\CHOLECALCIFEROL [Concomitant]
     Active Substance: CALCIUM CARBONATE\CHOLECALCIFEROL
  14. DOLIPRANE [Concomitant]
     Active Substance: ACETAMINOPHEN
  15. LUMIGAN [Concomitant]
     Active Substance: BIMATOPROST
  16. SYMBICORT [Concomitant]
     Active Substance: BUDESONIDE\FORMOTEROL FUMARATE DIHYDRATE

REACTIONS (7)
  - Hyponatraemia [Recovered/Resolved]
  - Confusional state [Recovered/Resolved]
  - Fall [Unknown]
  - General physical health deterioration [Unknown]
  - Altered state of consciousness [Unknown]
  - Rhabdomyolysis [Unknown]
  - Constipation [Unknown]

NARRATIVE: CASE EVENT DATE: 20250313
